FAERS Safety Report 7888528-3 (Version None)
Quarter: 2011Q4

REPORT INFORMATION
  Report Type: 
  Country: None (occurrence: None)
  Receive Date: 20111103
  Receipt Date: 20111025
  Transmission Date: 20120403
  Serious: Yes (Hospitalization, Other)
  Sender: FDA-Public Use
  Company Number: US-ROCHE-1007191

PATIENT
  Sex: Female

DRUGS (7)
  1. INCIVEK [Suspect]
     Indication: HEPATITIS C
     Route: 048
  2. IBUPROFEN [Concomitant]
     Route: 048
  3. TRAZODONE HYDROCHLORIDE [Concomitant]
     Route: 048
  4. PROZAC [Concomitant]
     Route: 048
  5. ESTRADIOL [Concomitant]
     Route: 048
  6. COPEGUS [Suspect]
     Indication: HEPATITIS C
     Route: 048
  7. PEGASYS [Suspect]
     Indication: HEPATITIS C

REACTIONS (10)
  - PYREXIA [None]
  - HYSTERECTOMY [None]
  - CHOLECYSTECTOMY [None]
  - ARTHRALGIA [None]
  - NIGHT SWEATS [None]
  - BASEDOW'S DISEASE [None]
  - WEIGHT DECREASED [None]
  - HEART RATE INCREASED [None]
  - TREMOR [None]
  - VIRAL LOAD INCREASED [None]
